FAERS Safety Report 23753092 (Version 3)
Quarter: 2024Q2

REPORT INFORMATION
  Report Type: Spontaneous
  Country: ES (occurrence: ES)
  Receive Date: 20240417
  Receipt Date: 20240523
  Transmission Date: 20240716
  Serious: Yes (Hospitalization, Other)
  Sender: FDA-Public Use
  Company Number: ES-BIOVITRUM-2024-ES-005853

PATIENT
  Age: 57 Year
  Sex: Female

DRUGS (2)
  1. KINERET [Suspect]
     Active Substance: ANAKINRA
     Indication: Familial cold autoinflammatory syndrome
     Dosage: 50 MG/24H
     Route: 058
  2. KINERET [Suspect]
     Active Substance: ANAKINRA
     Dosage: 100 MG/24H

REACTIONS (13)
  - Mouth ulceration [Unknown]
  - Ulcer [Unknown]
  - Urticarial vasculitis [Unknown]
  - Vasculitis [Unknown]
  - Vulval ulceration [Unknown]
  - Injection site reaction [Unknown]
  - Livedo reticularis [Unknown]
  - Ulcer haemorrhage [Unknown]
  - Hypotension [Unknown]
  - Depressed level of consciousness [Unknown]
  - Off label use of device [Unknown]
  - Drug ineffective [Unknown]
  - Condition aggravated [Recovered/Resolved]

NARRATIVE: CASE EVENT DATE: 20220101
